FAERS Safety Report 15761640 (Version 5)
Quarter: 2019Q3

REPORT INFORMATION
  Report Type: Spontaneous
  Country: JP (occurrence: JP)
  Receive Date: 20181226
  Receipt Date: 20190926
  Transmission Date: 20191004
  Serious: Yes (Other)
  Sender: FDA-Public Use
  Company Number: JP-GLAXOSMITHKLINE-JP2018JPN224002

PATIENT
  Age: 32 Year
  Sex: Female

DRUGS (8)
  1. PL COMBINATION GRANULE [Concomitant]
     Dosage: UNK
     Dates: start: 20181204
  2. FLOMOX (CEFCAPENE PIVOXIL HYDROCHLORIDE) [Concomitant]
     Active Substance: CEFCAPENE PIVOXIL HYDROCHLORIDE
     Dosage: UNK
     Dates: start: 20181204
  3. RELVAR ELLIPTA [Suspect]
     Active Substance: FLUTICASONE FUROATE\VILANTEROL TRIFENATATE
     Indication: ASTHMA
     Dosage: 200 ?G, UNK
     Route: 055
     Dates: start: 20190723
  4. RELVAR ELLIPTA [Suspect]
     Active Substance: FLUTICASONE FUROATE\VILANTEROL TRIFENATATE
     Dosage: 200 ?G, UNK
     Route: 055
  5. RELVAR ELLIPTA [Suspect]
     Active Substance: FLUTICASONE FUROATE\VILANTEROL TRIFENATATE
     Indication: ASTHMA
     Dosage: UNK ?G, UNK
     Route: 055
     Dates: start: 20181210
  6. ASTOMIN [Concomitant]
     Active Substance: DIMEMORFAN
     Dosage: UNK
     Dates: start: 20181204
  7. THEO-DUR [Concomitant]
     Active Substance: THEOPHYLLINE ANHYDROUS
     Dosage: UNK
  8. BAKUMONDOUTOU [Concomitant]
     Dosage: UNK

REACTIONS (16)
  - Schizophrenia [Unknown]
  - Nausea [Unknown]
  - Nasopharyngitis [Unknown]
  - Cough [Unknown]
  - Malaise [Unknown]
  - Dyspnoea [Unknown]
  - White blood cell count increased [Unknown]
  - Asthma [Unknown]
  - Enterocolitis viral [Unknown]
  - Diarrhoea [Unknown]
  - Laryngeal pain [Unknown]
  - Gastroenteritis [Unknown]
  - Vomiting [Unknown]
  - Pyrexia [Unknown]
  - Abdominal pain [Unknown]
  - Therapeutic product effect incomplete [Unknown]

NARRATIVE: CASE EVENT DATE: 201812
